FAERS Safety Report 8798026 (Version 2)
Quarter: 2013Q1

REPORT INFORMATION
  Report Type: Spontaneous
  Country: ES (occurrence: ES)
  Receive Date: 20120920
  Receipt Date: 20130306
  Transmission Date: 20140127
  Serious: Yes (Hospitalization, Other)
  Sender: FDA-Public Use
  Company Number: ES-ELI_LILLY_AND_COMPANY-ES201209002622

PATIENT
  Age: 40 Year
  Sex: Male
  Weight: 122 kg

DRUGS (3)
  1. ZYPADHERA [Suspect]
     Dosage: 300 MG, MONTHLY (1/M)
     Route: 030
     Dates: start: 201108, end: 20120817
  2. VENLAFAXIN [Concomitant]
     Dosage: 75 MG, UNK
     Route: 048
  3. CLORAZEPATE [Concomitant]
     Dosage: 75 MG, UNK
     Route: 048

REACTIONS (7)
  - Somnolence [Recovered/Resolved]
  - Coordination abnormal [Recovered/Resolved]
  - Hypotension [Recovered/Resolved]
  - Pyrexia [Recovered/Resolved]
  - Oxygen saturation decreased [Recovered/Resolved]
  - White blood cell count increased [Unknown]
  - Neutrophil count abnormal [Unknown]
